FAERS Safety Report 17652612 (Version 4)
Quarter: 2020Q2

REPORT INFORMATION
  Report Type: Spontaneous
  Country: US (occurrence: US)
  Receive Date: 20200409
  Receipt Date: 20200615
  Transmission Date: 20200713
  Serious: No
  Sender: FDA-Public Use
  Company Number: US-VERTEX PHARMACEUTICALS-2020-007990

PATIENT
  Age: 3 Year
  Sex: Female
  Weight: 13.15 kg

DRUGS (6)
  1. PULMOZYME [Concomitant]
     Active Substance: DORNASE ALFA
     Dosage: 2.5 MILLIGRAM, UNK
  2. CREON [Concomitant]
     Active Substance: PANCRELIPASE AMYLASE\PANCRELIPASE LIPASE\PANCRELIPASE PROTEASE
     Dosage: 6K-19K-30K
  3. VITAMIN D3 [Concomitant]
     Active Substance: CHOLECALCIFEROL
     Dosage: 400/ML DROPS
  4. HYPERSAL [Concomitant]
     Active Substance: SODIUM CHLORIDE
     Dosage: 3.5% VIAL-NEB
     Route: 045
  5. ALBUTEROL SULFATE. [Concomitant]
     Active Substance: ALBUTEROL SULFATE
     Dosage: 2 PUFFS, BID (HFA)
  6. ORKAMBI [Suspect]
     Active Substance: IVACAFTOR\LUMACAFTOR
     Indication: CYSTIC FIBROSIS
     Dosage: 100 MG LUMACAFTOR/ 125 MG IVACAFTOR GRANULES, 1 PACKET EVERY 12 HOURS
     Route: 048
     Dates: start: 201904

REACTIONS (3)
  - Cough [Recovering/Resolving]
  - Malaise [Not Recovered/Not Resolved]
  - Staphylococcal infection [Unknown]

NARRATIVE: CASE EVENT DATE: 202003
